FAERS Safety Report 17176002 (Version 1)
Quarter: 2019Q4

REPORT INFORMATION
  Report Type: Spontaneous
  Country: US (occurrence: US)
  Receive Date: 20191210
  Receipt Date: 20191210
  Transmission Date: 20200122
  Serious: No
  Sender: FDA-Public Use
  Company Number: None

PATIENT
  Sex: Female
  Weight: 60.75 kg

DRUGS (7)
  1. MAGNESIUM STEARATE [Suspect]
     Active Substance: MAGNESIUM STEARATE
     Indication: BEHCET^S SYNDROME
     Route: 048
  2. EXLAX [Concomitant]
  3. VITAMIN D [Concomitant]
     Active Substance: VITAMIN D NOS
  4. STELARA [Concomitant]
     Active Substance: USTEKINUMAB
  5. IGIV [Concomitant]
     Active Substance: HUMAN IMMUNOGLOBULIN G
  6. ARMOUR THYROID [Concomitant]
     Active Substance: THYROID, PORCINE
  7. VITAMIN B12 [Concomitant]
     Active Substance: CYANOCOBALAMIN

REACTIONS (1)
  - Drug hypersensitivity [None]
